FAERS Safety Report 21994655 (Version 2)
Quarter: 2023Q1

REPORT INFORMATION
  Report Type: Spontaneous
  Country: ES (occurrence: ES)
  Receive Date: 20230215
  Receipt Date: 20230322
  Transmission Date: 20230418
  Serious: Yes (Hospitalization)
  Sender: FDA-Public Use
  Company Number: None

PATIENT
  Age: 87 Year
  Sex: Female
  Weight: 66 kg

DRUGS (1)
  1. BOSULIF [Suspect]
     Active Substance: BOSUTINIB MONOHYDRATE
     Indication: Philadelphia positive chronic myeloid leukaemia
     Dosage: 3 TABLETS PER DAY (ALTERNATE TIMES WITH 2 A DAY DUE TO ADVERSE DIGESTIVE EFFECTS)
     Route: 048
     Dates: start: 201801, end: 20230125

REACTIONS (3)
  - Pleurisy [Recovering/Resolving]
  - Pericarditis [Recovering/Resolving]
  - Pleural effusion [Recovered/Resolved]

NARRATIVE: CASE EVENT DATE: 20220306
